FAERS Safety Report 14717989 (Version 1)
Quarter: 2018Q2

REPORT INFORMATION
  Report Type: Spontaneous
  Country: US (occurrence: US)
  Receive Date: 20180404
  Receipt Date: 20180404
  Transmission Date: 20180711
  Serious: No
  Sender: FDA-Public Use
  Company Number: US-SA-2018SA060100

PATIENT
  Sex: Male

DRUGS (2)
  1. PROVENTIL [Concomitant]
     Active Substance: ALBUTEROL
  2. DUPIXENT [Suspect]
     Active Substance: DUPILUMAB
     Indication: DERMATITIS ATOPIC
     Dosage: DOSE:150 MILLIGRAM(S)/MILLILITRE
     Route: 058
     Dates: start: 20170912

REACTIONS (2)
  - Drug dose omission [Unknown]
  - Dermatitis atopic [Not Recovered/Not Resolved]
